FAERS Safety Report 4708229-X (Version None)
Quarter: 2005Q2

REPORT INFORMATION
  Report Type: 
  Country: None (occurrence: None)
  Receive Date: 20050629
  Receipt Date: 20050516
  Transmission Date: 20051028
  Serious: No
  Sender: FDA-Public Use
  Company Number: 05P-163-0300623-00

PATIENT
  Age: 69 Year
  Sex: Female
  Weight: 127 kg

DRUGS (10)
  1. HUMIRA [Suspect]
     Indication: RHEUMATOID ARTHRITIS
     Dosage: 40 MG, 1 IN 2 WK, SUBCUTANEOUS
     Route: 058
     Dates: start: 20050301
  2. PREDNISONE [Concomitant]
  3. ETODOLAC [Concomitant]
  4. TEMAZEPAM [Concomitant]
  5. OMEPRAZOLE [Concomitant]
  6. VICODIN [Concomitant]
  7. HYDROCHLOROTHIAZIDE [Concomitant]
  8. PAMLOR [Concomitant]
  9. ATENOLOL [Concomitant]
  10. RANITIDINE HYDROCHLORIDE [Concomitant]

REACTIONS (3)
  - INJECTION SITE HAEMORRHAGE [None]
  - INJECTION SITE IRRITATION [None]
  - INJECTION SITE SWELLING [None]
